FAERS Safety Report 7799454-2 (Version None)
Quarter: 2011Q4

REPORT INFORMATION
  Report Type: 
  Country: None (occurrence: None)
  Receive Date: 20111006
  Receipt Date: 20110926
  Transmission Date: 20120403
  Serious: Yes (Other)
  Sender: FDA-Public Use
  Company Number: JP-SANOFI-AVENTIS-2011SA064516

PATIENT
  Age: 52 Year
  Sex: Male

DRUGS (1)
  1. ZOLPIDEM [Suspect]
     Route: 048

REACTIONS (1)
  - DELIRIUM [None]
